FAERS Safety Report 16217230 (Version 1)
Quarter: 2019Q2

REPORT INFORMATION
  Report Type: Spontaneous
  Country: US (occurrence: US)
  Receive Date: 20190315
  Receipt Date: 20190315
  Transmission Date: 20190711
  Serious: Yes (Hospitalization)
  Sender: FDA-Public Use
  Company Number: None

PATIENT
  Sex: Male

DRUGS (8)
  1. PREDNISONE. [Suspect]
     Active Substance: PREDNISONE
     Indication: PROSTATE CANCER
     Dosage: ?          OTHER FREQUENCY:QD IN AM ;?
     Route: 048
     Dates: start: 20181221
  2. AMLODIPINE [Concomitant]
     Active Substance: AMLODIPINE BESYLATE
  3. NIFEDIPINE. [Concomitant]
     Active Substance: NIFEDIPINE
  4. ABIRATERONE ACETATE. [Suspect]
     Active Substance: ABIRATERONE ACETATE
     Indication: PROSTATE CANCER
     Route: 048
     Dates: start: 20190219
  5. DOXYCY [Concomitant]
  6. ALLOPURINOL. [Suspect]
     Active Substance: ALLOPURINOL
  7. AZASITE [Concomitant]
     Active Substance: AZITHROMYCIN MONOHYDRATE
  8. METOPROLOL TARTRATE. [Concomitant]
     Active Substance: METOPROLOL TARTRATE

REACTIONS (3)
  - Ankle fracture [None]
  - Hypotension [None]
  - Loss of consciousness [None]
